FAERS Safety Report 7507044-1 (Version None)
Quarter: 2011Q2

REPORT INFORMATION
  Report Type: 
  Country: None (occurrence: None)
  Receive Date: 20110526
  Receipt Date: 20110516
  Transmission Date: 20111010
  Serious: Yes (Hospitalization)
  Sender: FDA-Public Use
  Company Number: US-UCBSA-027723

PATIENT
  Sex: Female
  Weight: 67.13 kg

DRUGS (2)
  1. CIMZIA [Suspect]
     Route: 058
     Dates: start: 20110301
  2. CIMZIA [Suspect]
     Indication: RHEUMATOID ARTHRITIS
     Route: 058
     Dates: start: 20100819, end: 20101101

REACTIONS (1)
  - PNEUMONIA LEGIONELLA [None]
